FAERS Safety Report 10225357 (Version 1)
Quarter: 2014Q2

REPORT INFORMATION
  Report Type: Spontaneous
  Country: US (occurrence: US)
  Receive Date: 20140609
  Receipt Date: 20140609
  Transmission Date: 20141212
  Serious: Yes (Hospitalization)
  Sender: FDA-Public Use
  Company Number: US-JNJFOC-20140601262

PATIENT
  Sex: Female

DRUGS (5)
  1. XARELTO [Suspect]
     Indication: PULMONARY EMBOLISM
     Route: 048
     Dates: start: 20140421
  2. CHLORTHALIDONE [Suspect]
     Indication: PRODUCT USED FOR UNKNOWN INDICATION
     Route: 048
     Dates: start: 20140421
  3. AMLODIPINE [Concomitant]
     Indication: CARDIAC DISORDER
     Route: 048
  4. ACIPHEX [Concomitant]
     Indication: BARRETT^S OESOPHAGUS
     Route: 048
  5. SENOKOT [Concomitant]
     Indication: CONSTIPATION
     Route: 048

REACTIONS (2)
  - Weight increased [Not Recovered/Not Resolved]
  - Oedema peripheral [Not Recovered/Not Resolved]
